FAERS Safety Report 4967945-5 (Version None)
Quarter: 2006Q2

REPORT INFORMATION
  Report Type: 
  Country: None (occurrence: None)
  Receive Date: 20060410
  Receipt Date: 20060329
  Transmission Date: 20061013
  Serious: Yes (Other)
  Sender: FDA-Public Use
  Company Number: BR-BRISTOL-MYERS SQUIBB COMPANY-13330691

PATIENT
  Age: 76 Year
  Sex: Female
  Weight: 62 kg

DRUGS (4)
  1. RUBRANOVA [Suspect]
     Indication: PAIN
     Dosage: DOSAGE: 15.000MCG/2ML
     Dates: start: 20060301, end: 20060319
  2. PURAN T4 [Concomitant]
  3. HYGROTON [Concomitant]
  4. OMEPRAZOLE [Concomitant]

REACTIONS (8)
  - CHEST PAIN [None]
  - COUGH [None]
  - ERYTHEMA [None]
  - FEELING HOT [None]
  - SWELLING FACE [None]
  - SYNCOPE [None]
  - VISION BLURRED [None]
  - VOMITING [None]
